FAERS Safety Report 9187921 (Version 1)
Quarter: 2013Q1

REPORT INFORMATION
  Report Type: Spontaneous
  Country: US (occurrence: US)
  Receive Date: 20130325
  Receipt Date: 20130325
  Transmission Date: 20140127
  Serious: No
  Sender: FDA-Public Use
  Company Number: US-MYLANLABS-2012S1018225

PATIENT
  Age: 52 Year
  Sex: Female

DRUGS (3)
  1. FENTANYL TRANSDERMAL SYSTEM [Suspect]
     Indication: BACK PAIN
     Dosage: CHANGE Q48HR
     Route: 062
     Dates: start: 2008
  2. CYMBALTA [Concomitant]
     Indication: PAIN
     Route: 048
  3. SEROQUEL [Concomitant]
     Indication: ANXIETY
     Route: 048

REACTIONS (3)
  - Drug ineffective [Recovered/Resolved]
  - Back pain [Recovered/Resolved]
  - Drug withdrawal syndrome [Recovered/Resolved]
